FAERS Safety Report 8877523 (Version 1)
Quarter: 2012Q4

REPORT INFORMATION
  Report Type: 
  Country: US (occurrence: None)
  Receive Date: 20121026
  Receipt Date: 20121026
  Transmission Date: 20130627
  Serious: Yes (Hospitalization)
  Sender: FDA-Public Use
  Company Number: OXYC20120057

PATIENT
  Age: 34 Year
  Sex: Female

DRUGS (4)
  1. OXYCODONE HCL [Suspect]
     Indication: PRODUCT USED FOR UNKNOWN INDICATION
     Route: 048
     Dates: end: 201208
  2. ZOLPIDEM TARTRATE [Suspect]
     Route: 048
     Dates: end: 201208
  3. FENTANYL [Suspect]
     Dates: end: 201208
  4. LORAZEPAM [Suspect]
     Route: 048
     Dates: end: 201208

REACTIONS (4)
  - Stress cardiomyopathy [None]
  - Unresponsive to stimuli [None]
  - Overdose [None]
  - Pupillary light reflex tests abnormal [None]
